FAERS Safety Report 8459201-8 (Version None)
Quarter: 2012Q2

REPORT INFORMATION
  Report Type: 
  Country: None (occurrence: None)
  Receive Date: 20120622
  Receipt Date: 20120612
  Transmission Date: 20120825
  Serious: Yes (Death, Life-Threatening)
  Sender: FDA-Public Use
  Company Number: JP-TEVA-2011003898

PATIENT
  Age: 46 Year
  Sex: Female
  Weight: 47.6 kg

DRUGS (8)
  1. ALLOPURINOL [Concomitant]
     Dates: start: 20110111, end: 20110120
  2. BENDAMUSTINE HYDROCHLORIDE [Suspect]
     Indication: B-CELL LYMPHOMA
     Dosage: 120 MG/M2;
     Route: 042
     Dates: start: 20110112, end: 20110113
  3. FLUDARABINE PHOSPHATE [Concomitant]
     Dates: start: 20110202, end: 20110205
  4. POTASSIUM CITRATE W/SODIUM [Concomitant]
     Dates: start: 20110111, end: 20110120
  5. BUSULFAN [Concomitant]
     Dates: start: 20110203, end: 20110204
  6. SULFAMETHOXAZOLE AND TRIMETHOPRIM [Concomitant]
     Dates: end: 20110203
  7. FLUCONAZOLE [Concomitant]
     Dates: end: 20110203
  8. OMEPRAZOLE [Concomitant]
     Dates: end: 20110203

REACTIONS (4)
  - ANAEMIA [None]
  - B-CELL LYMPHOMA [None]
  - PLATELET COUNT DECREASED [None]
  - SEPSIS [None]
